FAERS Safety Report 6344387-1 (Version None)
Quarter: 2009Q3

REPORT INFORMATION
  Report Type: 
  Country: None (occurrence: None)
  Receive Date: 20090908
  Receipt Date: 20090826
  Transmission Date: 20100115
  Serious: Yes (Hospitalization)
  Sender: FDA-Public Use
  Company Number: PHHY2009VE36770

PATIENT
  Sex: Male

DRUGS (5)
  1. DIOVAN [Suspect]
     Indication: HYPERTENSION
     Dosage: 160 MG, QD
  2. DIGOXIN [Concomitant]
     Dosage: ONCE A DAY
  3. DILATREND [Concomitant]
     Dosage: 25 MG, BID
  4. NITRODERM [Concomitant]
     Dosage: 1 PATCH A DAY
  5. VITAMINS [Concomitant]

REACTIONS (4)
  - BACK PAIN [None]
  - DIZZINESS [None]
  - MUSCULAR WEAKNESS [None]
  - PNEUMONIA [None]
